FAERS Safety Report 9433764 (Version 1)
Quarter: 2013Q3

REPORT INFORMATION
  Report Type: Report from Study
  Country: BR (occurrence: BR)
  Receive Date: 20130731
  Receipt Date: 20130731
  Transmission Date: 20140515
  Serious: Yes (Other)
  Sender: FDA-Public Use
  Company Number: PHHY2013BR077713

PATIENT
  Sex: Female
  Weight: 88 kg

DRUGS (7)
  1. DIOVAN AMLO FIX [Suspect]
     Indication: HYPERTENSION
     Dosage: 1 DF (160/5MG), QD (IN THE MORNING)
     Route: 048
     Dates: start: 20100615
  2. ATENOLOL+CHLORTHALIDONE SANDOZ [Suspect]
     Indication: HYPERTENSION
     Dosage: 1 DF (50/12.5MG), QD (IN THE MORNING)
     Route: 048
     Dates: start: 2011
  3. ALENDRONATE [Concomitant]
     Indication: ARTHRITIS
     Dosage: 70 MG, UNK
     Dates: start: 201206
  4. ALENDRONATE [Concomitant]
     Indication: OSTEOARTHRITIS
  5. FIXICAL VITAMINE D3 [Concomitant]
     Indication: ARTHRITIS
     Dosage: UNK (625/200MG), UNK
     Dates: start: 201206
  6. FIXICAL VITAMINE D3 [Concomitant]
     Indication: OSTEOARTHRITIS
  7. PREDNISONE [Concomitant]
     Dosage: UNK UKN, UNK

REACTIONS (4)
  - Blood pressure increased [Not Recovered/Not Resolved]
  - Swelling face [Not Recovered/Not Resolved]
  - Local swelling [Not Recovered/Not Resolved]
  - Weight increased [Not Recovered/Not Resolved]
